FAERS Safety Report 21679205 (Version 2)
Quarter: 2023Q2

REPORT INFORMATION
  Report Type: Report from Study
  Country: CA (occurrence: CA)
  Receive Date: 20221204
  Receipt Date: 20230410
  Transmission Date: 20230721
  Serious: Yes (Other)
  Sender: FDA-Public Use
  Company Number: CA-ABBVIE-4222379

PATIENT
  Sex: Female

DRUGS (2)
  1. HUMIRA [Suspect]
     Active Substance: ADALIMUMAB
     Indication: Product used for unknown indication
     Dosage: FORM STRENGTH-40 MG
     Route: 058
  2. HUMIRA [Suspect]
     Active Substance: ADALIMUMAB
     Indication: Crohn^s disease
     Dosage: STRENGTH- 40 MG
     Route: 058
     Dates: start: 20220715

REACTIONS (12)
  - Colostomy [Unknown]
  - Lacrimation increased [Unknown]
  - Fatigue [Unknown]
  - Limb mass [Unknown]
  - Uveitis [Not Recovered/Not Resolved]
  - Pain in extremity [Unknown]
  - Pustular psoriasis [Not Recovered/Not Resolved]
  - Fistula [Unknown]
  - Limb discomfort [Unknown]
  - Inflammation [Unknown]
  - Eye irritation [Unknown]
  - Pruritus [Unknown]

NARRATIVE: CASE EVENT DATE: 20220101
